FAERS Safety Report 13461099 (Version 1)
Quarter: 2017Q2

REPORT INFORMATION
  Report Type: Spontaneous
  Country: US (occurrence: US)
  Receive Date: 20170419
  Receipt Date: 20170419
  Transmission Date: 20170830
  Serious: Yes (Other)
  Sender: FDA-Public Use
  Company Number: None

PATIENT
  Age: 56 Year
  Sex: Female
  Weight: 60.75 kg

DRUGS (14)
  1. TIZANIDINE. [Concomitant]
     Active Substance: TIZANIDINE
  2. LEXAPRO [Concomitant]
     Active Substance: ESCITALOPRAM OXALATE
  3. ATORVASTATIN [Concomitant]
     Active Substance: ATORVASTATIN
  4. RAMIPRIL. [Concomitant]
     Active Substance: RAMIPRIL
  5. DEXILANT [Concomitant]
     Active Substance: DEXLANSOPRAZOLE
  6. BIOTIN [Concomitant]
     Active Substance: BIOTIN
  7. BUPROPION. [Concomitant]
     Active Substance: BUPROPION
  8. FENTANYL TRANSDERMAL SYSTEM [Concomitant]
     Active Substance: FENTANYL
  9. DILTIAZEM. [Concomitant]
     Active Substance: DILTIAZEM
  10. HYDROCODONE BITARTRATE AND ACETAMINOPHEN [Suspect]
     Active Substance: ACETAMINOPHEN\HYDROCODONE BITARTRATE
     Indication: PAIN
     Dosage: ?          QUANTITY:1 TABLET(S);?
     Route: 048
     Dates: start: 20170413, end: 20170415
  11. VITAMIN D [Concomitant]
     Active Substance: CHOLECALCIFEROL
  12. MULTI VITAMIN [Concomitant]
     Active Substance: VITAMINS
  13. BABY ASPIRIN [Concomitant]
     Active Substance: ASPIRIN
  14. CLONAZEPAM. [Concomitant]
     Active Substance: CLONAZEPAM

REACTIONS (5)
  - Product quality issue [None]
  - Headache [None]
  - Heart rate increased [None]
  - Blood pressure increased [None]
  - Tremor [None]

NARRATIVE: CASE EVENT DATE: 20170414
